FAERS Safety Report 18001690 (Version 1)
Quarter: 2020Q3

REPORT INFORMATION
  Report Type: Spontaneous
  Country: US (occurrence: US)
  Receive Date: 20200709
  Receipt Date: 20200709
  Transmission Date: 20201103
  Serious: Yes (Other)
  Sender: FDA-Public Use
  Company Number: US-SUNOVION-2020SUN001977

PATIENT
  Age: 39 Year
  Sex: Female

DRUGS (1)
  1. LATUDA [Suspect]
     Active Substance: LURASIDONE HYDROCHLORIDE
     Dosage: 80 MG
     Route: 048
     Dates: start: 201911

REACTIONS (6)
  - Cardiac failure [Unknown]
  - Amenorrhoea [Unknown]
  - Cardiomegaly [Unknown]
  - Breast tenderness [Unknown]
  - Dyspnoea [Unknown]
  - Urine output decreased [Unknown]
